FAERS Safety Report 6841048-7 (Version None)
Quarter: 2010Q3

REPORT INFORMATION
  Report Type: 
  Country: None (occurrence: None)
  Receive Date: 20100714
  Receipt Date: 20070625
  Transmission Date: 20110219
  Serious: No
  Sender: FDA-Public Use
  Company Number: US-PFIZER INC-2007052580

PATIENT
  Sex: Male

DRUGS (1)
  1. CHANTIX [Suspect]

REACTIONS (5)
  - INFLUENZA LIKE ILLNESS [None]
  - INSOMNIA [None]
  - MUSCLE SPASMS [None]
  - PAIN [None]
  - RESPIRATORY TRACT CONGESTION [None]
